FAERS Safety Report 8480082-0 (Version None)
Quarter: 2012Q2

REPORT INFORMATION
  Report Type: 
  Country: None (occurrence: None)
  Receive Date: 20120629
  Receipt Date: 20120618
  Transmission Date: 20120825
  Serious: Yes (Hospitalization, Other)
  Sender: FDA-Public Use
  Company Number: US-ELI_LILLY_AND_COMPANY-US201205006834

PATIENT
  Age: 71 Year
  Sex: Female
  Weight: 82.54 kg

DRUGS (12)
  1. ATORVASTATIN [Concomitant]
     Dosage: 20 MG, QD
  2. M.V.I. [Concomitant]
  3. CYMBALTA [Suspect]
     Indication: DEPRESSION
     Dosage: 60 MG, QD
     Route: 048
     Dates: end: 20120516
  4. OMEPRAZOLE [Concomitant]
     Dosage: 20 MG, QD
  5. DILTIAZEM HYDROCHOLORIDE [Concomitant]
     Dosage: 20 MG, QD
  6. EVISTA [Concomitant]
     Dosage: 60 MG, QD
  7. CLARITIN [Concomitant]
     Dosage: UNK, PRN
  8. AMITRIPTYLINE HCL [Concomitant]
     Dosage: 10 MG, EACH EVENING
  9. SYNTHROID [Concomitant]
     Dosage: 75 MG, QD
  10. NASACORT [Concomitant]
  11. NSAID'S [Concomitant]
  12. ASPIRIN [Concomitant]
     Dosage: 81 MG, QD

REACTIONS (1)
  - EOSINOPHILIC PNEUMONIA CHRONIC [None]
